FAERS Safety Report 23843072 (Version 2)
Quarter: 2024Q2

REPORT INFORMATION
  Report Type: Report from Study
  Country: US (occurrence: US)
  Receive Date: 20240510
  Receipt Date: 20240624
  Transmission Date: 20240715
  Serious: Yes (Hospitalization, Other)
  Sender: FDA-Public Use
  Company Number: US-OTSUKA-2023_015017

PATIENT
  Sex: Female

DRUGS (2)
  1. TOLVAPTAN [Suspect]
     Active Substance: TOLVAPTAN
     Indication: Congenital cystic kidney disease
     Dosage: UNK
     Route: 065
     Dates: start: 20230722
  2. TOLVAPTAN [Suspect]
     Active Substance: TOLVAPTAN
     Dosage: UNK
     Route: 065
     Dates: start: 20230112, end: 20240306

REACTIONS (17)
  - Infection [Unknown]
  - Crohn^s disease [Unknown]
  - Colonoscopy [Unknown]
  - Dehydration [Not Recovered/Not Resolved]
  - Diplopia [Unknown]
  - Abdominal hernia [Unknown]
  - Kidney enlargement [Unknown]
  - Hiatus hernia [Unknown]
  - Muscular weakness [Recovering/Resolving]
  - Abdominal discomfort [Unknown]
  - Vertigo [Recovering/Resolving]
  - Polyuria [Unknown]
  - Dizziness [Recovering/Resolving]
  - Intentional dose omission [Unknown]
  - Product dose omission issue [Unknown]
  - Drug monitoring procedure not performed [Unknown]
  - Labelled drug-food interaction issue [Unknown]

NARRATIVE: CASE EVENT DATE: 20230605
